FAERS Safety Report 10512446 (Version 1)
Quarter: 2014Q4

REPORT INFORMATION
  Report Type: Spontaneous
  Country: JP (occurrence: JP)
  Receive Date: 20141011
  Receipt Date: 20141011
  Transmission Date: 20150528
  Serious: Yes (Other)
  Sender: FDA-Public Use
  Company Number: JP-009507513-1410JPN002745

PATIENT
  Age: 74 Year
  Sex: Male
  Weight: 60 kg

DRUGS (5)
  1. CANCIDAS [Suspect]
     Active Substance: CASPOFUNGIN ACETATE
     Indication: PNEUMONIA FUNGAL
     Dosage: 70 MG, QD
     Route: 041
     Dates: start: 20140704, end: 20140704
  2. VENILON [Concomitant]
     Active Substance: HUMAN IMMUNOGLOBULIN G
     Indication: PNEUMONIA BACTERIAL
     Dosage: 5 G, QD
     Route: 051
     Dates: start: 20140704, end: 20140706
  3. CANCIDAS [Suspect]
     Active Substance: CASPOFUNGIN ACETATE
     Indication: PNEUMONIA FUNGAL
     Dosage: 50 MG, QD
     Route: 041
     Dates: start: 20140705, end: 20140716
  4. ZOSYN [Concomitant]
     Active Substance: PIPERACILLIN SODIUM\TAZOBACTAM SODIUM
     Indication: PNEUMONIA BACTERIAL
     Dosage: 4.5 G, TID
     Route: 051
     Dates: start: 20140705
  5. DENOSINE [Concomitant]
     Active Substance: GANCICLOVIR
     Indication: PNEUMONIA CYTOMEGALOVIRAL
     Dosage: 150 MG, QD
     Route: 051
     Dates: start: 20140704, end: 20140716

REACTIONS (2)
  - Gastric perforation [Recovered/Resolved]
  - Gastric ulcer [Recovered/Resolved]

NARRATIVE: CASE EVENT DATE: 20140719
